FAERS Safety Report 9742698 (Version 1)
Quarter: 2013Q4

REPORT INFORMATION
  Report Type: Spontaneous
  Country: US (occurrence: US)
  Receive Date: 20131210
  Receipt Date: 20131210
  Transmission Date: 20140711
  Serious: Yes (Disabling)
  Sender: FDA-Public Use
  Company Number: US-GILEAD-2009-0025741

PATIENT
  Age: 64 Year
  Sex: Female
  Weight: 49.49 kg

DRUGS (8)
  1. LETAIRIS [Suspect]
     Indication: PULMONARY ARTERIAL HYPERTENSION
     Route: 048
     Dates: start: 20090707, end: 20091130
  2. NEURONTIN [Concomitant]
  3. SULINDAC [Concomitant]
  4. KLOR-CON [Concomitant]
  5. ETODOLAC [Concomitant]
  6. OMEPRAZOLE [Concomitant]
  7. CARBAMAZEPINE [Concomitant]
  8. FISH OIL [Concomitant]

REACTIONS (1)
  - Oedema peripheral [Recovering/Resolving]
